FAERS Safety Report 6767174-9 (Version None)
Quarter: 2010Q2

REPORT INFORMATION
  Report Type: 
  Country: None (occurrence: None)
  Receive Date: 20100614
  Receipt Date: 20100608
  Transmission Date: 20101027
  Serious: No
  Sender: FDA-Public Use
  Company Number: US-ELI_LILLY_AND_COMPANY-US200910004811

PATIENT
  Sex: Male
  Weight: 125.17 kg

DRUGS (6)
  1. HUMALOG MIX 50/50 [Suspect]
     Indication: TYPE 2 DIABETES MELLITUS
  2. OMEPRAZOLE [Concomitant]
  3. LIPITOR [Concomitant]
  4. CARVEDILOL [Concomitant]
  5. NIASPAN [Concomitant]
  6. LISINOPRIL [Concomitant]

REACTIONS (3)
  - HYPOTENSION [None]
  - LIPASE INCREASED [None]
  - POOR QUALITY DRUG ADMINISTERED [None]
